FAERS Safety Report 10220826 (Version 1)
Quarter: 2014Q2

REPORT INFORMATION
  Report Type: Spontaneous
  Country: US (occurrence: None)
  Receive Date: 20140605
  Receipt Date: 20140605
  Transmission Date: 20141212
  Serious: Yes (Hospitalization)
  Sender: FDA-Public Use
  Company Number: None

PATIENT
  Age: 79 Year
  Sex: Male
  Weight: 68.04 kg

DRUGS (2)
  1. WARFARIN [Suspect]
     Indication: VASCULAR OPERATION
     Route: 048
  2. WARFARIN [Suspect]
     Indication: MUSCULOSKELETAL DISORDER
     Route: 048

REACTIONS (2)
  - Haemorrhage [None]
  - Gastric haemorrhage [None]
